FAERS Safety Report 4689419-1 (Version None)
Quarter: 2005Q2

REPORT INFORMATION
  Report Type: 
  Country: None (occurrence: None)
  Receive Date: 20050608
  Receipt Date: 20050418
  Transmission Date: 20051028
  Serious: No
  Sender: FDA-Public Use
  Company Number: 2005-BP-06437BP

PATIENT
  Sex: Male

DRUGS (2)
  1. SPIRIVA [Suspect]
     Indication: CHRONIC OBSTRUCTIVE PULMONARY DISEASE
     Dosage: 18 MCG (19 MCG, QD), PO
     Route: 048
     Dates: start: 20050310, end: 20050417
  2. ADVAIR DISKUS 100/50 [Suspect]
     Dates: start: 20050407, end: 20050417

REACTIONS (10)
  - BLOOD PRESSURE INCREASED [None]
  - BURNING SENSATION MUCOSAL [None]
  - COUGH [None]
  - DRUG INEFFECTIVE [None]
  - DYSPNOEA EXERTIONAL [None]
  - FATIGUE [None]
  - HEART RATE INCREASED [None]
  - INCREASED TENDENCY TO BRUISE [None]
  - PAIN [None]
  - TREMOR [None]
